FAERS Safety Report 7062148-5 (Version None)
Quarter: 2010Q4

REPORT INFORMATION
  Report Type: 
  Country: None (occurrence: None)
  Receive Date: 20101026
  Receipt Date: 20101022
  Transmission Date: 20110411
  Serious: Yes (Death)
  Sender: FDA-Public Use
  Company Number: PHHY2010PL70006

PATIENT
  Sex: Male

DRUGS (11)
  1. TASIGNA [Suspect]
     Indication: CHRONIC MYELOID LEUKAEMIA
     Dosage: 1 (400MG)
     Route: 048
     Dates: start: 20090624, end: 20100919
  2. TEGRETOL [Concomitant]
     Dosage: UNK
     Route: 048
  3. METOCARD [Concomitant]
     Dosage: UNK
     Route: 048
  4. AMLOZEK [Concomitant]
     Dosage: UNK
     Route: 048
  5. DOXAR [Concomitant]
     Dosage: UNK
     Route: 048
  6. XARTAN [Concomitant]
     Dosage: UNK
     Route: 048
  7. TENAXUM [Concomitant]
     Dosage: UNK
  8. IPOREL [Concomitant]
     Dosage: UNK
     Route: 048
  9. FUROSEMIDE [Concomitant]
     Dosage: UNK
     Route: 048
  10. ENARENAL [Concomitant]
     Dosage: UNK
     Route: 048
  11. MILURIT [Concomitant]
     Dosage: UNK
     Route: 048

REACTIONS (1)
  - CARDIAC ARREST [None]
